FAERS Safety Report 8041122-6 (Version None)
Quarter: 2012Q1

REPORT INFORMATION
  Report Type: 
  Country: None (occurrence: None)
  Receive Date: 20120112
  Receipt Date: 20120102
  Transmission Date: 20120608
  Serious: Yes (Death)
  Sender: FDA-Public Use
  Company Number: IT-TEVA-316709ISR

PATIENT
  Age: 12 Year
  Sex: Male

DRUGS (2)
  1. CISPLATIN [Suspect]
     Indication: HEPATOBLASTOMA
     Dosage: 80 MG/ML;
  2. DOXORUBICIN HCL [Suspect]
     Indication: HEPATOBLASTOMA
     Dosage: 25 MG/M2 EVERY 2 WEEKS FOR 2 CYCLES

REACTIONS (2)
  - HEPATOBLASTOMA [None]
  - DISEASE PROGRESSION [None]
